FAERS Safety Report 7549171-9 (Version None)
Quarter: 2011Q2

REPORT INFORMATION
  Report Type: 
  Country: None (occurrence: None)
  Receive Date: 20110615
  Receipt Date: 20110531
  Transmission Date: 20111010
  Serious: Yes (Other)
  Sender: FDA-Public Use
  Company Number: PHHY2011US47536

PATIENT
  Sex: Female

DRUGS (13)
  1. CITRACAL [Concomitant]
     Dosage: 500 MG, BID
  2. PRILOSEC [Concomitant]
     Dosage: 20 MG, BID
     Route: 048
  3. DARVOCET-N 50 [Concomitant]
     Indication: PAIN
     Dosage: 100-650 MG
  4. VICODIN [Concomitant]
     Dosage: 5-500 MG
     Route: 048
  5. RECLAST [Suspect]
     Indication: SENILE OSTEOPOROSIS
     Dosage: 5 MG, UNK
     Route: 042
     Dates: start: 20100525
  6. CITRACAL [Concomitant]
     Dosage: 630 MG, BID
     Route: 048
  7. FLORA SINUS [Concomitant]
     Dosage: UNK
  8. TRAMADOL HCL [Concomitant]
     Dosage: UNK
     Route: 048
  9. MOBIC [Concomitant]
     Dosage: 7.5 MG, QD
     Route: 048
  10. LISINOPRIL [Concomitant]
     Dosage: 10 MG, QD
     Route: 048
  11. SOMA [Concomitant]
     Dosage: 350 MG, PRN
  12. AMITRIPTYLINE HCL [Concomitant]
     Dosage: 50 MG, QHS
     Route: 048
  13. STOOL SOFTENER [Concomitant]
     Dosage: UNK

REACTIONS (23)
  - ARTHRALGIA [None]
  - HYPERTENSION [None]
  - GASTROOESOPHAGEAL REFLUX DISEASE [None]
  - DYSPNOEA [None]
  - OSTEOARTHRITIS [None]
  - OSTEOPENIA [None]
  - CONSTIPATION [None]
  - ERECTILE DYSFUNCTION [None]
  - BALANCE DISORDER [None]
  - PULSE ABNORMAL [None]
  - FATIGUE [None]
  - HIP FRACTURE [None]
  - BACK PAIN [None]
  - GASTROINTESTINAL DISORDER [None]
  - OSTEONECROSIS [None]
  - PAIN [None]
  - OSTEOMYELITIS [None]
  - ASTHENIA [None]
  - FRACTURE [None]
  - PALPITATIONS [None]
  - MUSCULAR WEAKNESS [None]
  - ARTHRITIS [None]
  - JOINT SWELLING [None]
